FAERS Safety Report 17352996 (Version 1)
Quarter: 2020Q1

REPORT INFORMATION
  Report Type: Report from Study
  Country: GB (occurrence: GB)
  Receive Date: 20200131
  Receipt Date: 20200131
  Transmission Date: 20200409
  Serious: Yes (Death, Hospitalization, Disabling)
  Sender: FDA-Public Use
  Company Number: GB-ROCHE-2531566

PATIENT
  Age: 70 Year
  Sex: Male
  Weight: 87 kg

DRUGS (1)
  1. ALTEPLASE. [Suspect]
     Active Substance: ALTEPLASE
     Indication: ISCHAEMIC STROKE
     Dosage: W/ A SINGLE WEIGHT ADJUSTED DOSE UP TO A MAXIMUM OF 90 MG (1 IN 1 ONCE)
     Route: 042
     Dates: start: 20200112

REACTIONS (5)
  - Atrial fibrillation [Fatal]
  - Brain neoplasm malignant [Fatal]
  - Lacunar stroke [Fatal]
  - Type 2 diabetes mellitus [Fatal]
  - Pneumonia aspiration [Recovering/Resolving]

NARRATIVE: CASE EVENT DATE: 20200114
